FAERS Safety Report 15609195 (Version 1)
Quarter: 2018Q4

REPORT INFORMATION
  Report Type: Spontaneous
  Country: US (occurrence: US)
  Receive Date: 20181112
  Receipt Date: 20181112
  Transmission Date: 20190205
  Serious: Yes (Hospitalization)
  Sender: FDA-Public Use
  Company Number: US-PFIZER INC-2018463901

PATIENT
  Age: 81 Year
  Sex: Female

DRUGS (1)
  1. XELJANZ [Suspect]
     Active Substance: TOFACITINIB CITRATE
     Dosage: 5 MG, DAILY

REACTIONS (9)
  - Dyspnoea [Recovering/Resolving]
  - Atrial fibrillation [Not Recovered/Not Resolved]
  - Dizziness [Unknown]
  - Skin abrasion [Unknown]
  - Fatigue [Unknown]
  - Cardiac failure congestive [Recovering/Resolving]
  - Condition aggravated [Unknown]
  - Palpitations [Unknown]
  - Oedema [Recovering/Resolving]
